FAERS Safety Report 23648390 (Version 3)
Quarter: 2024Q2

REPORT INFORMATION
  Report Type: Spontaneous
  Country: US (occurrence: US)
  Receive Date: 20240319
  Receipt Date: 20240614
  Transmission Date: 20240716
  Serious: Yes (Death, Other)
  Sender: FDA-Public Use
  Company Number: US-PFIZER INC-202400067159

PATIENT
  Age: 59 Year
  Sex: Male

DRUGS (8)
  1. BRAFTOVI [Suspect]
     Active Substance: ENCORAFENIB
     Indication: Metastatic malignant melanoma
     Dosage: 450 MG, DAILY (TAKE 6 CAPSULES BY MOUTH IN THE MORNING)
     Route: 048
     Dates: start: 20240304
  2. MEKTOVI [Suspect]
     Active Substance: BINIMETINIB
     Indication: Metastatic malignant melanoma
     Dosage: 90 MG, DAILY (TAKE 3 TABLETS BY MOUTH IN THE MORNING AND 3 TABLETS BEFORE BEDTIME)
     Route: 048
     Dates: start: 20240304
  3. TYLENOL [Concomitant]
     Active Substance: ACETAMINOPHEN
     Dosage: UNK
  4. ZOFRAN [Concomitant]
     Active Substance: ONDANSETRON HYDROCHLORIDE
     Dosage: UNK
  5. KEPPRA [Concomitant]
     Active Substance: LEVETIRACETAM
     Dosage: UNK
  6. DEXAMETHASONE [Concomitant]
     Active Substance: DEXAMETHASONE
     Dosage: UNK
  7. PRILOSEC [Concomitant]
     Active Substance: OMEPRAZOLE MAGNESIUM
     Dosage: UNK
  8. AMLODIPINE BESYLATE [Concomitant]
     Active Substance: AMLODIPINE BESYLATE
     Dosage: UNK

REACTIONS (3)
  - Death [Fatal]
  - Fatigue [Unknown]
  - Malaise [Unknown]
